FAERS Safety Report 5362080-9 (Version None)
Quarter: 2007Q2

REPORT INFORMATION
  Report Type: 
  Country: None (occurrence: None)
  Receive Date: 20070619
  Receipt Date: 20070608
  Transmission Date: 20071010
  Serious: Yes (Other)
  Sender: FDA-Public Use
  Company Number: US-AMGEN-US223867

PATIENT
  Sex: Female

DRUGS (6)
  1. PROCRIT [Suspect]
     Indication: RENAL FAILURE CHRONIC
     Route: 065
     Dates: start: 20061201, end: 20070301
  2. ACCUPRIL [Concomitant]
     Route: 065
     Dates: start: 20040101
  3. CLONIDINE [Concomitant]
     Route: 065
     Dates: start: 20040101
  4. CARDIZEM [Concomitant]
     Route: 065
     Dates: start: 20010101
  5. GLUCOTROL [Concomitant]
     Route: 065
     Dates: start: 20041101
  6. SYNTHROID [Concomitant]
     Route: 065

REACTIONS (5)
  - BRAIN OEDEMA [None]
  - CEREBROVASCULAR ACCIDENT [None]
  - EYE PAIN [None]
  - HYPERTENSION [None]
  - OEDEMA [None]
